FAERS Safety Report 9894918 (Version 1)
Quarter: 2014Q1

REPORT INFORMATION
  Report Type: Spontaneous
  Country: US (occurrence: US)
  Receive Date: 20140213
  Receipt Date: 20140213
  Transmission Date: 20141002
  Serious: No
  Sender: FDA-Public Use
  Company Number: US-SA-2014SA013089

PATIENT
  Sex: Female

DRUGS (1)
  1. KYNAMRO [Suspect]
     Indication: TYPE IIA HYPERLIPIDAEMIA
     Route: 065
     Dates: start: 20140127

REACTIONS (3)
  - Dyspnoea [Recovered/Resolved]
  - Injection site erythema [Unknown]
  - Injection site bruising [Unknown]
